FAERS Safety Report 10146223 (Version 1)
Quarter: 2014Q2

REPORT INFORMATION
  Report Type: Spontaneous
  Country: US (occurrence: None)
  Receive Date: 20140430
  Receipt Date: 20140430
  Transmission Date: 20141212
  Serious: Yes (Other)
  Sender: FDA-Public Use
  Company Number: None

PATIENT
  Age: 76 Year
  Sex: Female
  Weight: 72.58 kg

DRUGS (2)
  1. AVELOX [Suspect]
     Indication: SINUSITIS
     Route: 048
     Dates: start: 20140109, end: 20140113
  2. AVELOX [Suspect]
     Indication: COUGH
     Route: 048
     Dates: start: 20140109, end: 20140113

REACTIONS (3)
  - Arthralgia [None]
  - Asthenia [None]
  - Arthropathy [None]
